FAERS Safety Report 5512542-6 (Version None)
Quarter: 2007Q4

REPORT INFORMATION
  Report Type: 
  Country: None (occurrence: None)
  Receive Date: 20071112
  Receipt Date: 20070831
  Transmission Date: 20080405
  Serious: No
  Sender: FDA-Public Use
  Company Number: A0667636A

PATIENT
  Age: 51 Year
  Sex: Male

DRUGS (6)
  1. AVANDAMET [Suspect]
     Route: 048
  2. AVODART [Suspect]
     Route: 065
  3. ALTACE [Concomitant]
  4. HUMALOG [Concomitant]
  5. AVODART [Concomitant]
  6. ASPIRIN [Concomitant]

REACTIONS (2)
  - DYSPNOEA EXERTIONAL [None]
  - FATIGUE [None]
